FAERS Safety Report 8268081-5 (Version None)
Quarter: 2012Q2

REPORT INFORMATION
  Report Type: 
  Country: None (occurrence: None)
  Receive Date: 20120409
  Receipt Date: 20120403
  Transmission Date: 20120825
  Serious: Yes (Life-Threatening)
  Sender: FDA-Public Use
  Company Number: AU-ASTRAZENECA-2012SE22061

PATIENT
  Age: 27 Year
  Sex: Female

DRUGS (5)
  1. ORAL CONTRACEPTIVE NOS [Concomitant]
     Route: 048
  2. SEVOFLURANE [Interacting]
  3. BRAUER NATURAL MEDICINE ARNICA [Interacting]
     Dosage: UNKNOWN DOSE DAILY
  4. FENTANYL CITRATE [Interacting]
  5. PROPOFOL [Suspect]

REACTIONS (2)
  - DRUG INTERACTION [None]
  - RESPIRATORY PARALYSIS [None]
